FAERS Safety Report 8223567-4 (Version None)
Quarter: 2012Q1

REPORT INFORMATION
  Report Type: 
  Country: None (occurrence: None)
  Receive Date: 20120321
  Receipt Date: 20120315
  Transmission Date: 20120608
  Serious: No
  Sender: FDA-Public Use
  Company Number: US-PFIZER INC-2011202265

PATIENT
  Sex: Female

DRUGS (2)
  1. PREMARIN [Suspect]
     Indication: HYSTERECTOMY
     Dosage: 1.25 MG, 1X/DAY
     Route: 048
  2. LYRICA [Suspect]
     Indication: BACK PAIN
     Dosage: 150 MG, 1X/DAY
     Route: 048

REACTIONS (2)
  - PAIN [None]
  - NASOPHARYNGITIS [None]
